FAERS Safety Report 9439190 (Version 2)
Quarter: 2013Q3

REPORT INFORMATION
  Report Type: Spontaneous
  Country: AU (occurrence: AU)
  Receive Date: 20130803
  Receipt Date: 20130829
  Transmission Date: 20140515
  Serious: Yes (Death)
  Sender: FDA-Public Use
  Company Number: AU-B.I. PHARMACEUTICALS,INC./RIDGEFIELD-2013-AU-00936AU

PATIENT
  Age: 82 Year
  Sex: Female
  Weight: 78.1 kg

DRUGS (22)
  1. PRADAXA [Suspect]
     Indication: CEREBROVASCULAR ACCIDENT PROPHYLAXIS
     Dosage: 110 MG
     Dates: start: 20110726, end: 20130225
  2. PRADAXA [Suspect]
     Indication: ATRIAL FIBRILLATION
  3. ATORVASTATIN [Concomitant]
     Dosage: 10 MG
     Route: 048
     Dates: start: 20121108
  4. CHOLECALCIFEROL [Concomitant]
     Dosage: 6ML WEEKLY
     Route: 048
     Dates: start: 20121220
  5. DIGOXIN [Concomitant]
     Dosage: 125 MCG
     Route: 048
     Dates: start: 20121108
  6. HALOPERIDOL [Concomitant]
     Dosage: 500 MCG
     Route: 048
     Dates: start: 20130212
  7. HYDROXOCOBALAMIN [Concomitant]
     Dosage: 1 AMPOULE EVERY 3 MONTHS
     Route: 030
     Dates: start: 20121108
  8. IRBESARTAN [Concomitant]
     Dosage: 75 MG
     Route: 048
     Dates: start: 20121108
  9. MADOPAR [Concomitant]
     Dosage: 300 MG
     Route: 048
     Dates: start: 20121108
  10. METOPROLOL [Concomitant]
     Dosage: 100 MG
     Route: 048
     Dates: start: 20121108
  11. OESTRIOL [Concomitant]
     Dosage: APPLY AT NIGHT ON MONDAY AND THURSDAYS
     Route: 067
     Dates: start: 20130103
  12. OXYBUTYNIN [Concomitant]
     Dosage: 5 MG
     Route: 048
     Dates: start: 20121108
  13. NORSPAN [Concomitant]
     Dosage: APPLY ONCE WEEKLY
     Route: 061
     Dates: start: 20130305
  14. DOCUSATE + SENNA [Concomitant]
     Dosage: 100 MG
     Route: 048
     Dates: start: 20121108
  15. HALOPERIDOL [Concomitant]
     Dosage: PRN
     Route: 030
     Dates: start: 20121108
  16. LOPERAMIDE [Concomitant]
     Dosage: 4 MG
     Route: 048
     Dates: start: 20121108
  17. METOCLOPRAMIDE [Concomitant]
     Dosage: EVERY 8 HOURS PRN
     Route: 030
     Dates: start: 20121108
  18. OXAZEPAM [Concomitant]
     Dosage: 15 MG
     Route: 048
     Dates: start: 20121108
  19. PARACETAMOL [Concomitant]
     Dosage: 4000 MG
     Route: 048
     Dates: start: 20121108
  20. MORPHINE [Concomitant]
     Dosage: 5 MG PRN
     Route: 030
     Dates: start: 20130327
  21. BUSCOPAN [Concomitant]
     Dosage: 20 MG 6H PRN
     Route: 030
     Dates: start: 20130327
  22. PARACETAMOL [Concomitant]
     Indication: PYREXIA
     Dosage: 4000 MG
     Route: 054
     Dates: start: 20130327

REACTIONS (2)
  - Pneumonia aspiration [Fatal]
  - Off label use [Unknown]
